FAERS Safety Report 4378619-6 (Version None)
Quarter: 2004Q2

REPORT INFORMATION
  Report Type: 
  Country: None (occurrence: None)
  Receive Date: 20040610
  Receipt Date: 20040602
  Transmission Date: 20050107
  Serious: Yes (Death)
  Sender: FDA-Public Use
  Company Number: 04P-056-0258946-00

PATIENT
  Age: 79 Year
  Sex: Male

DRUGS (3)
  1. TRICOR [Suspect]
     Dosage: ORAL
     Route: 048
  2. ALLOPURINOL [Concomitant]
  3. ANTIHYERTENSIVES [Concomitant]

REACTIONS (2)
  - INTERSTITIAL LUNG DISEASE [None]
  - PULMONARY FIBROSIS [None]
